FAERS Safety Report 10566035 (Version 1)
Quarter: 2014Q4

REPORT INFORMATION
  Report Type: Spontaneous
  Country: US (occurrence: None)
  Receive Date: 20141104
  Receipt Date: 20141104
  Transmission Date: 20150529
  Serious: No
  Sender: FDA-Public Use
  Company Number: None

PATIENT
  Age: 40 Year
  Sex: Female
  Weight: 65.77 kg

DRUGS (1)
  1. NITROFURANTOIN 100 MG [Suspect]
     Active Substance: NITROFURANTOIN
     Indication: URINARY TRACT INFECTION
     Dosage: 1 CAPSULE  TWICE DAILY TAKEN BY MOUTH
     Route: 048
     Dates: start: 20141016, end: 20141024

REACTIONS (2)
  - Rash macular [None]
  - Urticaria [None]

NARRATIVE: CASE EVENT DATE: 20141024
